FAERS Safety Report 8418945 (Version 8)
Quarter: 2013Q2

REPORT INFORMATION
  Report Type: Report from Study
  Country: BR (occurrence: BR)
  Receive Date: 20120221
  Receipt Date: 20130515
  Transmission Date: 20140414
  Serious: Yes (Death, Hospitalization, Other)
  Sender: FDA-Public Use
  Company Number: BR-BRISTOL-MYERS SQUIBB COMPANY-16400640

PATIENT
  Age: 49 Year
  Sex: Male

DRUGS (3)
  1. IPILIMUMAB [Suspect]
     Indication: MALIGNANT MELANOMA
     Dosage: 25NOV-25NOV11,233MG?16DEC-16DEC11,237MG?27JAN12-27JAN12,246MG
     Route: 042
     Dates: start: 20111125, end: 20120127
  2. DEXAMETHASONE [Concomitant]
     Dates: start: 2011, end: 20120325
  3. METHYLPREDNISOLONE [Concomitant]
     Dates: start: 20120106, end: 2012

REACTIONS (4)
  - Malignant neoplasm progression [Fatal]
  - Metastases to central nervous system [Not Recovered/Not Resolved]
  - Erysipelas [Recovered/Resolved]
  - Depressed level of consciousness [Recovered/Resolved]
